FAERS Safety Report 8339972-1 (Version None)
Quarter: 2012Q2

REPORT INFORMATION
  Report Type: 
  Country: None (occurrence: None)
  Receive Date: 20120507
  Receipt Date: 20120430
  Transmission Date: 20120825
  Serious: Yes (Death)
  Sender: FDA-Public Use
  Company Number: US-ASTELLAS-2012US003291

PATIENT
  Sex: Female
  Weight: 68 kg

DRUGS (3)
  1. TARCEVA [Suspect]
     Indication: PANCREATIC CARCINOMA METASTATIC
     Dosage: 100 MG, UID/QD
     Route: 048
     Dates: start: 20120201
  2. PAIN MEDICATION [Suspect]
     Indication: PAIN
     Dosage: UNK
     Route: 065
  3. GEMZAR [Concomitant]
     Indication: PRODUCT USED FOR UNKNOWN INDICATION
     Dosage: 4 DOSES
     Route: 065
     Dates: start: 20120118, end: 20120227

REACTIONS (3)
  - PERIPHERAL VASCULAR DISORDER [None]
  - CONFUSIONAL STATE [None]
  - PANCREATIC CARCINOMA METASTATIC [None]
